FAERS Safety Report 6592193-5 (Version None)
Quarter: 2010Q1

REPORT INFORMATION
  Report Type: 
  Country: None (occurrence: None)
  Receive Date: 20100221
  Receipt Date: 20091112
  Transmission Date: 20100710
  Serious: No
  Sender: FDA-Public Use
  Company Number: US-ALLERGAN-0912717US

PATIENT
  Age: 69 Year
  Sex: Female

DRUGS (10)
  1. BOTOX [Suspect]
     Indication: TORTICOLLIS
     Dosage: 300 UNITS, SINGLE
     Route: 030
     Dates: start: 20090824, end: 20090824
  2. INDERAL [Concomitant]
  3. FEXOFENADINE [Concomitant]
  4. LEVOTHYROXINE SODIUM [Concomitant]
  5. BONIVA [Concomitant]
  6. FISH OIL [Concomitant]
  7. CALCIUM [Concomitant]
  8. CENTRUM SILVER [Concomitant]
  9. ASPIRIN [Concomitant]
     Dosage: 325 MG, QD
  10. MYSOLINE [Concomitant]

REACTIONS (3)
  - BLOOD PRESSURE INCREASED [None]
  - DIZZINESS [None]
  - MUSCULAR WEAKNESS [None]
